FAERS Safety Report 7936291-X (Version None)
Quarter: 2011Q4

REPORT INFORMATION
  Report Type: 
  Country: None (occurrence: None)
  Receive Date: 20111123
  Receipt Date: 20111114
  Transmission Date: 20120403
  Serious: Yes (Hospitalization)
  Sender: FDA-Public Use
  Company Number: US-BAYER-201039601NA

PATIENT
  Age: 30 Year
  Sex: Female

DRUGS (7)
  1. YASMIN [Suspect]
     Indication: PREMENSTRUAL SYNDROME
  2. UNCODEABLE ^UNCLASSIFIABLE^ [Concomitant]
     Indication: ANTIINFLAMMATORY THERAPY
  3. VISTARIL [Concomitant]
     Dosage: UNK
     Dates: start: 20030601
  4. YASMIN [Suspect]
     Indication: PRODUCT USED FOR UNKNOWN INDICATION
     Dosage: UNK
     Route: 048
     Dates: start: 20030601, end: 20030701
  5. PERCOCET [Concomitant]
  6. NAPROSYN [Concomitant]
  7. DEMEROL [Concomitant]
     Dosage: UNK
     Route: 042
     Dates: start: 20030601

REACTIONS (1)
  - PULMONARY EMBOLISM [None]
